FAERS Safety Report 8163632-3 (Version None)
Quarter: 2012Q1

REPORT INFORMATION
  Report Type: 
  Country: None (occurrence: None)
  Receive Date: 20120224
  Receipt Date: 20120217
  Transmission Date: 20120608
  Serious: No
  Sender: FDA-Public Use
  Company Number: US-AMGEN-USASP2011019688

PATIENT
  Age: 56 Year
  Sex: Male
  Weight: 142.86 kg

DRUGS (3)
  1. ENBREL [Suspect]
     Indication: PSORIATIC ARTHROPATHY
     Dosage: 50 MG, QWK
     Dates: start: 20110131, end: 20110405
  2. REMICADE [Concomitant]
     Dosage: UNK
  3. CELEBREX [Concomitant]
     Dosage: UNK

REACTIONS (9)
  - GLUCOSE TOLERANCE IMPAIRED [None]
  - PARAESTHESIA [None]
  - FURUNCLE [None]
  - VITAMIN D DEFICIENCY [None]
  - HYPERAESTHESIA [None]
  - SKIN DISCOLOURATION [None]
  - HYPOAESTHESIA [None]
  - ASPARTATE AMINOTRANSFERASE INCREASED [None]
  - ALANINE AMINOTRANSFERASE INCREASED [None]
